FAERS Safety Report 4486401-4 (Version None)
Quarter: 2004Q4

REPORT INFORMATION
  Report Type: 
  Country: None (occurrence: None)
  Receive Date: 20041022
  Receipt Date: 20041011
  Transmission Date: 20050328
  Serious: Yes (Hospitalization)
  Sender: FDA-Public Use
  Company Number: US-2004-028728

PATIENT
  Age: 68 Year
  Sex: Male
  Weight: 71.7 kg

DRUGS (8)
  1. LEUKINE [Suspect]
     Indication: LEUKOPENIA
     Dosage: 500 UG/DAY X5 DAYS X3 CYCLES, SUBCUTANEOUS
     Route: 058
     Dates: start: 20040526, end: 20040713
  2. TAXOTERE [Concomitant]
  3. CISPLATIN [Concomitant]
  4. ZOCOR [Concomitant]
  5. ALTACE [Concomitant]
  6. FOLIC ACID [Concomitant]
  7. ASPIRIN [Concomitant]
  8. PROVENTIL [Concomitant]

REACTIONS (5)
  - CHRONIC OBSTRUCTIVE AIRWAYS DISEASE EXACERBATED [None]
  - DRUG HYPERSENSITIVITY [None]
  - HAEMOGLOBIN DECREASED [None]
  - LUNG NEOPLASM MALIGNANT [None]
  - MALIGNANT NEOPLASM PROGRESSION [None]
